FAERS Safety Report 5961734-0 (Version None)
Quarter: 2008Q4

REPORT INFORMATION
  Report Type: 
  Country: None (occurrence: None)
  Receive Date: 20081114
  Receipt Date: 20080811
  Transmission Date: 20090506
  Serious: No
  Sender: FDA-Public Use
  Company Number: WAES 0805USA03770

PATIENT

DRUGS (1)
  1. ISENTRESS [Suspect]

REACTIONS (1)
  - CHOLELITHIASIS [None]
